FAERS Safety Report 13274903 (Version 4)
Quarter: 2017Q4

REPORT INFORMATION
  Report Type: Spontaneous
  Country: US (occurrence: US)
  Receive Date: 20170227
  Receipt Date: 20171218
  Transmission Date: 20180320
  Serious: Yes (Other)
  Sender: FDA-Public Use
  Company Number: US-ACTELION-A-NJ2017-150443

PATIENT
  Age: 70 Year
  Sex: Female

DRUGS (3)
  1. TYVASO [Suspect]
     Active Substance: TREPROSTINIL
     Indication: PULMONARY HYPERTENSION
     Dosage: 18-54 MCG, QID
     Route: 055
     Dates: start: 20160830
  2. TYVASO [Suspect]
     Active Substance: TREPROSTINIL
     Dosage: 42 MCG, TID
     Route: 055
  3. TRACLEER [Suspect]
     Active Substance: BOSENTAN
     Indication: PULMONARY HYPERTENSION
     Route: 048

REACTIONS (10)
  - Deafness [Unknown]
  - Glossitis [Unknown]
  - Glossodynia [Unknown]
  - Heart rate abnormal [Unknown]
  - Oropharyngeal pain [Unknown]
  - Cheilitis [Unknown]
  - Drug ineffective [Unknown]
  - Dysphonia [Unknown]
  - Swollen tongue [Unknown]
  - Pharyngeal oedema [Unknown]
